FAERS Safety Report 7261467-7 (Version None)
Quarter: 2011Q1

REPORT INFORMATION
  Report Type: 
  Country: None (occurrence: None)
  Receive Date: 20110130
  Receipt Date: 20100921
  Transmission Date: 20110831
  Serious: No
  Sender: FDA-Public Use
  Company Number: US-ABBOTT-10P-163-0672459-00

PATIENT
  Age: 26 Year
  Sex: Female

DRUGS (3)
  1. SELSLETE [Concomitant]
     Indication: PRODUCT USED FOR UNKNOWN INDICATION
  2. HUMIRA [Suspect]
     Indication: ANKYLOSING SPONDYLITIS
     Dates: start: 20090301
  3. CYCLOBENZAPRINE [Concomitant]
     Indication: PRODUCT USED FOR UNKNOWN INDICATION

REACTIONS (4)
  - OROPHARYNGEAL PAIN [None]
  - NASAL CONGESTION [None]
  - CHILLS [None]
  - INFLUENZA LIKE ILLNESS [None]
